FAERS Safety Report 10078667 (Version 3)
Quarter: 2016Q1

REPORT INFORMATION
  Report Type: Spontaneous
  Country: JP (occurrence: JP)
  Receive Date: 20140415
  Receipt Date: 20160118
  Transmission Date: 20160525
  Serious: Yes (Death, Hospitalization)
  Sender: FDA-Public Use
  Company Number: JP-TEVA-475461ISR

PATIENT
  Age: 77 Year
  Sex: Male

DRUGS (10)
  1. DIART [Concomitant]
     Active Substance: AZOSEMIDE
     Dosage: 60 MILLIGRAM DAILY;
     Route: 048
     Dates: start: 201303, end: 20140114
  2. NOVORAPID [Concomitant]
     Active Substance: INSULIN ASPART
     Dosage: 30 UNITS/DAY
     Route: 058
     Dates: start: 20130829, end: 20140110
  3. DUROTEP MT PATCH [Concomitant]
     Active Substance: FENTANYL
     Dosage: 2.1 MILLIGRAM DAILY;
     Route: 062
     Dates: start: 20130921, end: 20140113
  4. FILGRASTIM BS INJ. ^NK^ [Suspect]
     Active Substance: FILGRASTIM
     Indication: NEUTROPENIA
     Dosage: 75 MICRO/BODY
     Route: 058
     Dates: start: 20131130, end: 20131130
  5. HUMILIN N [Concomitant]
     Dosage: 4 UNITS/DAY
     Route: 058
     Dates: start: 201310, end: 20131219
  6. GASCON [Concomitant]
     Active Substance: DIMETHICONE
     Dosage: 120 MILLIGRAM DAILY;
     Route: 048
     Dates: start: 20130917, end: 20140114
  7. CALSED [Concomitant]
     Dosage: 40 MILLIGRAM DAILY;
     Route: 042
     Dates: start: 20131009, end: 20131219
  8. OXINORM [Concomitant]
     Active Substance: OXYCODONE HYDROCHLORIDE
     Dosage: 10 MILLIGRAM DAILY;
     Route: 048
     Dates: start: 201310, end: 20140116
  9. FILGRASTIM BS INJ. ^NK^ [Suspect]
     Active Substance: FILGRASTIM
     Dosage: 75 MICRO/BODY
     Route: 058
     Dates: start: 20131220, end: 20131223
  10. FILGRASTIM BS INJ. ^NK^ [Suspect]
     Active Substance: FILGRASTIM
     Dosage: 75 MICRO/BODY
     Route: 058
     Dates: start: 20131211, end: 20131215

REACTIONS (2)
  - Condition aggravated [Fatal]
  - Pyrexia [Not Recovered/Not Resolved]

NARRATIVE: CASE EVENT DATE: 20140105
